FAERS Safety Report 8956146 (Version 2)
Quarter: 2013Q1

REPORT INFORMATION
  Report Type: Spontaneous
  Country: US (occurrence: US)
  Receive Date: 20121210
  Receipt Date: 20130111
  Transmission Date: 20140127
  Serious: Yes (Other)
  Sender: FDA-Public Use
  Company Number: PHEH2012US024203

PATIENT
  Age: 25 Year
  Sex: Female
  Weight: 97.52 kg

DRUGS (2)
  1. GILENYA [Suspect]
     Indication: MULTIPLE SCLEROSIS
     Dosage: 0.5 MG, QD
     Route: 048
     Dates: start: 20121206
  2. TRAZODONE [Concomitant]
     Route: 048

REACTIONS (3)
  - Supraventricular extrasystoles [Recovered/Resolved]
  - Palpitations [Recovered/Resolved]
  - Electrocardiogram QT shortened [Recovered/Resolved]
